FAERS Safety Report 23343930 (Version 3)
Quarter: 2024Q1

REPORT INFORMATION
  Report Type: Spontaneous
  Country: JP (occurrence: JP)
  Receive Date: 20231227
  Receipt Date: 20240205
  Transmission Date: 20240410
  Serious: Yes (Hospitalization, Other)
  Sender: FDA-Public Use
  Company Number: JP-Eisai-202311786_LEN-EC_P_1

PATIENT
  Age: 79 Year
  Sex: Female
  Weight: 43 kg

DRUGS (3)
  1. LENVIMA [Suspect]
     Active Substance: LENVATINIB
     Indication: Endometrial cancer
     Route: 048
     Dates: start: 20231120, end: 20231201
  2. LENVIMA [Suspect]
     Active Substance: LENVATINIB
     Route: 048
     Dates: start: 20231211, end: 20231212
  3. KEYTRUDA [Suspect]
     Active Substance: PEMBROLIZUMAB
     Indication: Endometrial cancer
     Route: 041
     Dates: start: 20231116, end: 20231204

REACTIONS (8)
  - Myositis [Not Recovered/Not Resolved]
  - Immune-mediated myasthenia gravis [Not Recovered/Not Resolved]
  - Hyperthyroidism [Unknown]
  - Neck pain [Recovering/Resolving]
  - Musculoskeletal stiffness [Unknown]
  - Paraesthesia oral [Unknown]
  - Diplopia [Unknown]
  - Hypertension [Unknown]

NARRATIVE: CASE EVENT DATE: 20231215
